FAERS Safety Report 11765189 (Version 2)
Quarter: 2015Q4

REPORT INFORMATION
  Report Type: Spontaneous
  Country: US (occurrence: US)
  Receive Date: 20151121
  Receipt Date: 20151204
  Transmission Date: 20160304
  Serious: Yes (Hospitalization, Other)
  Sender: FDA-Public Use
  Company Number: US-AUROBINDO-AUR-APL-2015-10459

PATIENT
  Age: 2 Year
  Sex: Female

DRUGS (1)
  1. ARIPIPRAZOLE TABLETS 15MG [Suspect]
     Active Substance: ARIPIPRAZOLE
     Indication: PRODUCT USED FOR UNKNOWN INDICATION
     Dosage: 3 DF, UNK
     Route: 065

REACTIONS (11)
  - Irritability [Recovered/Resolved]
  - Agitation [Recovered/Resolved]
  - Accidental exposure to product by child [Recovered/Resolved]
  - Ataxia [Recovered/Resolved]
  - Lethargy [Recovered/Resolved]
  - Vomiting [Recovered/Resolved]
  - Somnolence [Recovered/Resolved]
  - Sluggishness [Recovered/Resolved]
  - Drug screen false positive [Recovered/Resolved]
  - Accidental overdose [Recovered/Resolved]
  - Hypothermia [Recovered/Resolved]
